FAERS Safety Report 25374352 (Version 1)
Quarter: 2025Q2

REPORT INFORMATION
  Report Type: Other
  Country: CN (occurrence: None)
  Receive Date: 20250529
  Receipt Date: 20250529
  Transmission Date: 20250716
  Serious: Yes (Hospitalization)
  Sender: INCYTE
  Company Number: CN-002147023-NVSC2025CN084919

PATIENT
  Age: 12 Year

DRUGS (4)
  1. RUXOLITINIB [Suspect]
     Active Substance: RUXOLITINIB
     Indication: Inflammation
     Dosage: 5 MG, BID
  2. RUXOLITINIB [Suspect]
     Active Substance: RUXOLITINIB
     Dosage: 5 MG, QD
  3. VANCOCIN [Concomitant]
     Active Substance: VANCOMYCIN HYDROCHLORIDE
     Indication: Infection
     Dosage: 0.5 G, QID
  4. ZYVOX [Concomitant]
     Active Substance: LINEZOLID
     Indication: Infection
     Dosage: 600 MG, BID

REACTIONS (2)
  - Hepatic function abnormal [Recovering/Resolving]
  - Off label use [Unknown]
